FAERS Safety Report 24816437 (Version 1)
Quarter: 2025Q1

REPORT INFORMATION
  Report Type: Spontaneous
  Country: US (occurrence: US)
  Receive Date: 20250107
  Receipt Date: 20250107
  Transmission Date: 20250409
  Serious: No
  Sender: PFIZER
  Company Number: US-PFIZER INC-202500001796

PATIENT
  Sex: Female

DRUGS (1)
  1. PAXLOVID [Suspect]
     Active Substance: NIRMATRELVIR\RITONAVIR
     Indication: COVID-19 treatment
     Dates: start: 20241231

REACTIONS (4)
  - Blood pressure increased [Unknown]
  - Headache [Unknown]
  - Palpitations [Unknown]
  - Middle insomnia [Unknown]

NARRATIVE: CASE EVENT DATE: 20250103
